FAERS Safety Report 14477410 (Version 2)
Quarter: 2018Q3

REPORT INFORMATION
  Report Type: Report from Study
  Country: US (occurrence: US)
  Receive Date: 20180201
  Receipt Date: 20180723
  Transmission Date: 20181010
  Serious: No
  Sender: FDA-Public Use
  Company Number: US-EXELIXIS-CABO-17011013

PATIENT
  Sex: Female

DRUGS (31)
  1. SIMVASTATIN. [Concomitant]
     Active Substance: SIMVASTATIN
  2. HYDRALAZINE [Concomitant]
     Active Substance: HYDRALAZINE HYDROCHLORIDE
  3. MUPIROCIN. [Concomitant]
     Active Substance: MUPIROCIN
  4. POTASSIUM CHLORIDE. [Concomitant]
     Active Substance: POTASSIUM CHLORIDE
  5. CABOMETYX [Suspect]
     Active Substance: CABOZANTINIB S-MALATE
     Indication: RENAL CANCER
     Dosage: 60 MG, QD
     Route: 048
     Dates: start: 20170825, end: 20171208
  6. BISACODYL. [Concomitant]
     Active Substance: BISACODYL
  7. LIDOCAINE. [Concomitant]
     Active Substance: LIDOCAINE
  8. ADVAIR HFA [Concomitant]
     Active Substance: FLUTICASONE PROPIONATE\SALMETEROL XINAFOATE
  9. HYDROCORTISONE. [Concomitant]
     Active Substance: HYDROCORTISONE
  10. ZOFRAN [Concomitant]
     Active Substance: ONDANSETRON HYDROCHLORIDE
  11. CLOPIDOGREL [Concomitant]
     Active Substance: CLOPIDOGREL BISULFATE
  12. LEVEMIR [Concomitant]
     Active Substance: INSULIN DETEMIR
  13. MULTIVITAMIN [Concomitant]
     Active Substance: VITAMINS
  14. ASPIRIN. [Concomitant]
     Active Substance: ASPIRIN
  15. CLONIDINE. [Concomitant]
     Active Substance: CLONIDINE
  16. CARVEDILOL. [Concomitant]
     Active Substance: CARVEDILOL
  17. VICTOZA [Concomitant]
     Active Substance: LIRAGLUTIDE
  18. VITAMIN D [Concomitant]
     Active Substance: CHOLECALCIFEROL
  19. RITALIN [Concomitant]
     Active Substance: METHYLPHENIDATE HYDROCHLORIDE
  20. OXYCODONE [Concomitant]
     Active Substance: OXYCODONE
  21. FENTANYL. [Concomitant]
     Active Substance: FENTANYL
  22. METHADONE [Concomitant]
     Active Substance: METHADONE HYDROCHLORIDE
  23. TIZANIDINE. [Concomitant]
     Active Substance: TIZANIDINE
  24. ALBUTEROL. [Concomitant]
     Active Substance: ALBUTEROL
  25. FERROUS SULFATE. [Concomitant]
     Active Substance: FERROUS SULFATE
  26. CALCIUM BICARBONATE [Concomitant]
     Active Substance: CALCIUM BICARBONATE
  27. RANITIDINE. [Concomitant]
     Active Substance: RANITIDINE
  28. FUROSEMIDE. [Concomitant]
     Active Substance: FUROSEMIDE
  29. GABAPENTIN. [Concomitant]
     Active Substance: GABAPENTIN
  30. SERTRALINE [Concomitant]
     Active Substance: SERTRALINE HYDROCHLORIDE
  31. CABOMETYX [Suspect]
     Active Substance: CABOZANTINIB S-MALATE
     Indication: METASTASES TO BONE

REACTIONS (5)
  - Blood blister [Unknown]
  - Malignant neoplasm progression [Unknown]
  - Impaired healing [Not Recovered/Not Resolved]
  - Staphylococcal infection [Unknown]
  - Cancer pain [Unknown]
